FAERS Safety Report 14753878 (Version 1)
Quarter: 2018Q2

REPORT INFORMATION
  Report Type: Spontaneous
  Country: DE (occurrence: DE)
  Receive Date: 20180412
  Receipt Date: 20180412
  Transmission Date: 20180711
  Serious: Yes (Other)
  Sender: FDA-Public Use
  Company Number: DE-AKRON, INC.-2045690

PATIENT

DRUGS (1)
  1. ZIOPTAN [Suspect]
     Active Substance: TAFLUPROST
     Route: 047

REACTIONS (6)
  - Eye pain [Recovering/Resolving]
  - Injury corneal [Unknown]
  - Product dropper issue [Unknown]
  - Abnormal sensation in eye [Unknown]
  - Conjunctival laceration [Unknown]
  - Eye haemorrhage [Not Recovered/Not Resolved]

NARRATIVE: CASE EVENT DATE: 20180317
